FAERS Safety Report 6347065-8 (Version None)
Quarter: 2009Q3

REPORT INFORMATION
  Report Type: 
  Country: None (occurrence: None)
  Receive Date: 20090910
  Receipt Date: 20090828
  Transmission Date: 20100115
  Serious: Yes (Life-Threatening, Hospitalization)
  Sender: FDA-Public Use
  Company Number: DE-PFIZER INC-2008011800

PATIENT
  Age: 32 Year

DRUGS (3)
  1. CHAMPIX [Suspect]
     Indication: SMOKING CESSATION THERAPY
     Dosage: ACCORDING TO SCHEME
     Route: 048
     Dates: start: 20080109, end: 20080116
  2. GEVILON [Suspect]
     Indication: TYPE IV HYPERLIPIDAEMIA
     Route: 048
     Dates: start: 20071001, end: 20080101
  3. GEVILON [Suspect]
     Indication: HYPERLIPIDAEMIA

REACTIONS (5)
  - AUTOIMMUNE HEPATITIS [None]
  - INSOMNIA [None]
  - JAUNDICE [None]
  - NAUSEA [None]
  - VOMITING [None]
